FAERS Safety Report 9728523 (Version 1)
Quarter: 2013Q4

REPORT INFORMATION
  Report Type: Report from Study
  Country: US (occurrence: US)
  Receive Date: 20131204
  Receipt Date: 20131204
  Transmission Date: 20140711
  Serious: Yes (Other)
  Sender: FDA-Public Use
  Company Number: PHEH2013US025001

PATIENT
  Age: 67 Year
  Sex: Female

DRUGS (2)
  1. AFINITOR [Suspect]
     Indication: UTERINE CANCER
     Dosage: 10 MG, DAILY
     Route: 048
     Dates: start: 20131010
  2. AFINITOR [Suspect]
     Indication: OFF LABEL USE

REACTIONS (3)
  - White blood cell disorder [Not Recovered/Not Resolved]
  - Dysgeusia [Not Recovered/Not Resolved]
  - Weight decreased [Not Recovered/Not Resolved]
